FAERS Safety Report 7079064-5 (Version None)
Quarter: 2010Q4

REPORT INFORMATION
  Report Type: 
  Country: None (occurrence: None)
  Receive Date: 20101102
  Receipt Date: 20101027
  Transmission Date: 20110411
  Serious: Yes (Other)
  Sender: FDA-Public Use
  Company Number: US-BAYER-201022634BCC

PATIENT
  Sex: Female

DRUGS (2)
  1. ASPIRIN [Suspect]
     Route: 048
  2. ASPIRIN [Concomitant]
     Route: 048

REACTIONS (3)
  - FREQUENT BOWEL MOVEMENTS [None]
  - HAEMORRHAGE [None]
  - VOMITING [None]
